FAERS Safety Report 19140289 (Version 1)
Quarter: 2021Q2

REPORT INFORMATION
  Report Type: Spontaneous
  Country: US (occurrence: US)
  Receive Date: 20210415
  Receipt Date: 20210415
  Transmission Date: 20210717
  Serious: Yes (Death)
  Sender: FDA-Public Use
  Company Number: None

PATIENT
  Age: 65 Year
  Sex: Male

DRUGS (13)
  1. OXYCODONE [Concomitant]
     Active Substance: OXYCODONE
  2. GUANFACINE. [Concomitant]
     Active Substance: GUANFACINE
  3. BUPROPN HCL [Concomitant]
     Active Substance: BUPROPION HYDROCHLORIDE
  4. LEVERIRACETA [Concomitant]
  5. OXYCONTIN [Concomitant]
     Active Substance: OXYCODONE HYDROCHLORIDE
  6. DEXAMETHASON [Concomitant]
     Active Substance: DEXAMETHASONE
  7. METOPROL TAR [Concomitant]
  8. ALECENSA [Suspect]
     Active Substance: ALECTINIB HYDROCHLORIDE
     Indication: LUNG NEOPLASM MALIGNANT
     Route: 048
     Dates: start: 20210202, end: 20210410
  9. FUROSEMIDE. [Concomitant]
     Active Substance: FUROSEMIDE
  10. POT CL MICRO [Concomitant]
  11. MEMANTINE. [Concomitant]
     Active Substance: MEMANTINE
  12. POLYETH GLYC [Concomitant]
     Active Substance: POLYETHYLENE GLYCOLS
  13. OMEPRAZOLE. [Concomitant]
     Active Substance: OMEPRAZOLE

REACTIONS (1)
  - Death [None]

NARRATIVE: CASE EVENT DATE: 20210410
